FAERS Safety Report 24451091 (Version 2)
Quarter: 2024Q4

REPORT INFORMATION
  Report Type: Report from Study
  Country: US (occurrence: US)
  Receive Date: 20241017
  Receipt Date: 20241101
  Transmission Date: 20250114
  Serious: Yes (Hospitalization)
  Sender: VERTEX
  Company Number: US-VERTEX PHARMACEUTICALS-2024-016096

PATIENT
  Age: 17 Year
  Sex: Female

DRUGS (13)
  1. TRIKAFTA [Suspect]
     Active Substance: ELEXACAFTOR\IVACAFTOR\TEZACAFTOR
     Indication: Cystic fibrosis
     Dosage: 2 TABS IN AM, 1 TAB IN PM
     Route: 048
     Dates: start: 20231220
  2. OMEPRAZOLE [Concomitant]
     Active Substance: OMEPRAZOLE
  3. VITAMIN D3 [Concomitant]
     Active Substance: CHOLECALCIFEROL
  4. ALBUTEROL [Concomitant]
     Active Substance: ALBUTEROL
     Dosage: (2.5MG/3ML) 25X3ML
  5. DULERA [Concomitant]
     Active Substance: FORMOTEROL FUMARATE DIHYDRATE\MOMETASONE FUROATE
     Dosage: 200-5MCG
  6. SPIRIVA RESPIMAT [Concomitant]
     Active Substance: TIOTROPIUM BROMIDE
  7. FLUTICASONE [Concomitant]
     Active Substance: FLUTICASONE
  8. MINERALS\VITAMINS [Concomitant]
     Active Substance: MINERALS\VITAMINS
  9. PULMOZYME [Concomitant]
     Active Substance: DORNASE ALFA
  10. SODIUM CHLORIDE [Concomitant]
     Active Substance: SODIUM CHLORIDE
  11. TOBI [Concomitant]
     Active Substance: TOBRAMYCIN
  12. PERTZYE [Concomitant]
     Active Substance: PANCRELIPASE AMYLASE\PANCRELIPASE LIPASE\PANCRELIPASE PROTEASE
     Dosage: 4000
  13. VENTOLIN [Concomitant]
     Active Substance: ALBUTEROL SULFATE

REACTIONS (1)
  - Infective pulmonary exacerbation of cystic fibrosis [Recovered/Resolved]

NARRATIVE: CASE EVENT DATE: 20241004
